FAERS Safety Report 20623005 (Version 1)
Quarter: 2022Q1

REPORT INFORMATION
  Report Type: Spontaneous
  Country: None (occurrence: FR)
  Receive Date: 20220322
  Receipt Date: 20220322
  Transmission Date: 20220424
  Serious: Yes (Hospitalization)
  Sender: FDA-Public Use
  Company Number: FR-B.Braun Medical Inc.-2127013

PATIENT
  Age: 34 Year
  Sex: Female
  Weight: 54 kg

DRUGS (14)
  1. DEXTROSE [Suspect]
     Active Substance: DEXTROSE
  2. AMINO ACIDS, SOURCE UNSPECIFIED [Suspect]
     Active Substance: AMINO ACIDS, SOURCE UNSPECIFIED
  3. CALCIUM GLUCONATE [Suspect]
     Active Substance: CALCIUM GLUCONATE
  4. IRON\MINERALS\POTASSIUM IOD\SODIUM FLUORIDE\SODIUM MOLYBDATE\SODIUM SE [Suspect]
     Active Substance: IRON\MINERALS\POTASSIUM IOD\SODIUM FLUORIDE\SODIUM MOLYBDATE\SODIUM SELENITE\ZINC
  5. VITAMIN K [Suspect]
     Active Substance: PHYTONADIONE
  6. SODIUM SELENITE [Suspect]
     Active Substance: SODIUM SELENITE
  7. PHOCYTAN [Suspect]
     Active Substance: .ALPHA.-GLUCOSE-1-PHOSPHATE
  8. .ALPHA.-TOCOPHEROL ACETATE [Suspect]
     Active Substance: .ALPHA.-TOCOPHEROL ACETATE
  9. FATTY ACIDS [Suspect]
     Active Substance: FATTY ACIDS
  10. MAGNESIUM SULFATE [Suspect]
     Active Substance: MAGNESIUM SULFATE
  11. POTASSIUM CHLORIDE [Suspect]
     Active Substance: POTASSIUM CHLORIDE
  12. ZINC GLUCONATE [Suspect]
     Active Substance: ZINC GLUCONATE
  13. SODIUM CHLORIDE [Suspect]
     Active Substance: SODIUM CHLORIDE
  14. CERNEVIT [Suspect]
     Active Substance: VITAMINS

REACTIONS (4)
  - Pyrexia [Recovered/Resolved]
  - Suspected transmission of an infectious agent via product [Recovered/Resolved]
  - Enterobacter infection [Recovered/Resolved]
  - Exposure during pregnancy [Recovered/Resolved]
